FAERS Safety Report 9686114 (Version 6)
Quarter: 2014Q4

REPORT INFORMATION
  Report Type: Report from Study
  Country: US (occurrence: US)
  Receive Date: 20131113
  Receipt Date: 20141203
  Transmission Date: 20150529
  Serious: Yes (Hospitalization)
  Sender: FDA-Public Use
  Company Number: US-ROCHE-1273311

PATIENT
  Age: 63 Year
  Sex: Male
  Weight: 43.5 kg

DRUGS (64)
  1. PACLITAXEL. [Suspect]
     Active Substance: PACLITAXEL
     Indication: NON-SMALL CELL LUNG CANCER
     Dosage: DATE OF LAST DOSE (304MG) PRIOR TO SYMPTOMATIC PNEUMOTHORAX, PLEURAL EMPYEMA, INCREASED RIGHT LUNG E
     Route: 042
     Dates: start: 20130912
  2. MOTRIN [Concomitant]
     Active Substance: IBUPROFEN
     Indication: PAIN
     Route: 048
     Dates: start: 20130810
  3. LISINOPRIL. [Concomitant]
     Active Substance: LISINOPRIL
     Indication: DIABETES MELLITUS
     Route: 048
     Dates: start: 20100306
  4. PROTONIX (UNITED STATES) [Concomitant]
     Route: 048
     Dates: start: 20131012
  5. BUPIVACAINE [Concomitant]
     Active Substance: BUPIVACAINE
     Route: 042
     Dates: start: 20131015, end: 20131015
  6. GLUCOTROL [Concomitant]
     Active Substance: GLIPIZIDE
     Indication: DIABETES MELLITUS
     Route: 048
     Dates: start: 20130720
  7. ZOFRAN [Concomitant]
     Active Substance: ONDANSETRON HYDROCHLORIDE
     Route: 042
     Dates: start: 20130928, end: 20130928
  8. DILAUDID [Concomitant]
     Active Substance: HYDROMORPHONE HYDROCHLORIDE
     Route: 042
     Dates: start: 20131108, end: 20131111
  9. XYLOCAINE [Concomitant]
     Active Substance: LIDOCAINE HYDROCHLORIDE
     Route: 050
     Dates: start: 20131101, end: 20131101
  10. ATROVENT [Concomitant]
     Active Substance: IPRATROPIUM BROMIDE
     Indication: DYSPNOEA
     Route: 055
     Dates: start: 20131029, end: 20131102
  11. INSULIN [Concomitant]
     Active Substance: INSULIN NOS
     Indication: HYPERGLYCAEMIA
     Route: 058
     Dates: start: 20131028, end: 20131102
  12. IOHEXOL [Concomitant]
     Active Substance: IOHEXOL
     Route: 048
     Dates: start: 20131030, end: 20131030
  13. MAGNESIUM SULFATE. [Concomitant]
     Active Substance: MAGNESIUM SULFATE
     Indication: HYPOMAGNESAEMIA
     Route: 042
     Dates: start: 20131012, end: 20131012
  14. BEVACIZUMAB [Suspect]
     Active Substance: BEVACIZUMAB
     Indication: NON-SMALL CELL LUNG CANCER
     Dosage: DATE OF LAST DOSE (755.2MG) PRIOR TO SYMPTOMATIC PNEUMOTHORAX, PLEURAL EMPYEMA, INCREASED RIGHT LUNG
     Route: 042
     Dates: start: 20130912
  15. ZOFRAN [Concomitant]
     Active Substance: ONDANSETRON HYDROCHLORIDE
     Route: 048
     Dates: start: 20130912
  16. ZOFRAN [Concomitant]
     Active Substance: ONDANSETRON HYDROCHLORIDE
     Route: 042
     Dates: start: 20131011, end: 20131021
  17. ATROVENT [Concomitant]
     Active Substance: IPRATROPIUM BROMIDE
     Route: 055
     Dates: start: 20131013, end: 20131122
  18. TYGACIL [Concomitant]
     Active Substance: TIGECYCLINE
     Route: 042
     Dates: start: 20131108, end: 20131118
  19. DOXYCYCLINE. [Concomitant]
     Active Substance: DOXYCYCLINE
     Indication: EMPYEMA
     Route: 042
     Dates: start: 20131108, end: 20131108
  20. ZOLOFT [Concomitant]
     Active Substance: SERTRALINE HYDROCHLORIDE
     Indication: DEPRESSION
     Route: 048
     Dates: start: 20131102
  21. HEPARIN SODIUM. [Concomitant]
     Active Substance: HEPARIN SODIUM
     Indication: PROPHYLAXIS
     Dosage: 5000 UNITS
     Route: 058
     Dates: start: 20131107, end: 20131113
  22. PROVENTIL [Concomitant]
     Active Substance: ALBUTEROL
     Indication: DYSPNOEA
     Route: 055
     Dates: start: 20131029, end: 20131102
  23. CLEOCIN [Concomitant]
     Active Substance: CLINDAMYCIN PHOSPHATE
     Indication: MEDIASTINOSCOPY
     Route: 042
     Dates: start: 20131015, end: 20131015
  24. EPINEPHRINE. [Concomitant]
     Active Substance: EPINEPHRINE
     Dosage: 1:2000,000, GIVEN WITH BUPIVACAINE
     Route: 042
     Dates: start: 20131015, end: 20131015
  25. METFORMIN [Concomitant]
     Active Substance: METFORMIN HYDROCHLORIDE
     Indication: DIABETES MELLITUS
     Route: 048
     Dates: start: 20100206
  26. DILAUDID [Concomitant]
     Active Substance: HYDROMORPHONE HYDROCHLORIDE
     Route: 042
     Dates: start: 20131028, end: 20131102
  27. DILAUDID [Concomitant]
     Active Substance: HYDROMORPHONE HYDROCHLORIDE
     Route: 042
     Dates: start: 20131011, end: 20131020
  28. DILAUDID [Concomitant]
     Active Substance: HYDROMORPHONE HYDROCHLORIDE
     Route: 042
     Dates: start: 20131015
  29. NORMAL SALINE [Concomitant]
     Active Substance: SODIUM CHLORIDE
     Route: 042
     Dates: start: 20131011, end: 20131021
  30. CHLORHEXIDINE GLUCONATE. [Concomitant]
     Active Substance: CHLORHEXIDINE GLUCONATE
     Route: 061
     Dates: start: 20131101, end: 20131102
  31. DEXTROSE/SODIUM CHLORIDE [Concomitant]
     Dosage: D5-NACL 0.45
     Route: 042
     Dates: start: 20131107, end: 20131108
  32. DIPRIVAN [Concomitant]
     Active Substance: PROPOFOL
     Dosage: 1000MG/100CC
     Route: 042
     Dates: start: 20131015, end: 20131015
  33. ZOFRAN [Concomitant]
     Active Substance: ONDANSETRON HYDROCHLORIDE
     Route: 042
     Dates: start: 20131028, end: 20131028
  34. PEPCID [Concomitant]
     Active Substance: FAMOTIDINE
     Indication: PROPHYLAXIS
     Route: 048
     Dates: start: 20130725, end: 20130820
  35. NORMAL SALINE [Concomitant]
     Active Substance: SODIUM CHLORIDE
     Route: 042
     Dates: start: 20131110, end: 20131113
  36. NORMAL SALINE [Concomitant]
     Active Substance: SODIUM CHLORIDE
     Route: 042
     Dates: start: 20131015, end: 20131015
  37. MIRALAX [Concomitant]
     Active Substance: POLYETHYLENE GLYCOL 3350
     Route: 048
     Dates: start: 20131011
  38. ATROVENT [Concomitant]
     Active Substance: IPRATROPIUM BROMIDE
     Route: 055
     Dates: start: 20131107, end: 20131107
  39. LOVENOX [Concomitant]
     Active Substance: ENOXAPARIN SODIUM
     Route: 058
     Dates: start: 20131011, end: 20131114
  40. TYGACIL [Concomitant]
     Active Substance: TIGECYCLINE
     Indication: INFECTIOUS PLEURAL EFFUSION
     Route: 042
     Dates: start: 20131109, end: 20131113
  41. PLACEBO [Suspect]
     Active Substance: UNSPECIFIED INGREDIENT
     Indication: NON-SMALL CELL LUNG CANCER
     Dosage: DATE OF LAST DOSE PRIOR TO SYMPTOMATIC PNEUMOTHORAX, PLEURAL EMPYEMA, INCREASED RIGHT LUNG EMPYEMA:
     Route: 048
     Dates: start: 20130912
  42. COLACE [Concomitant]
     Active Substance: DOCUSATE SODIUM
     Indication: CONSTIPATION
     Route: 048
     Dates: start: 20130703
  43. MIRALAX [Concomitant]
     Active Substance: POLYETHYLENE GLYCOL 3350
     Indication: CONSTIPATION
     Route: 048
     Dates: start: 20131029
  44. MS CONTIN [Concomitant]
     Active Substance: MORPHINE SULFATE
     Route: 048
     Dates: start: 20131029, end: 20131102
  45. LOVENOX [Concomitant]
     Active Substance: ENOXAPARIN SODIUM
     Indication: PROPHYLAXIS
     Route: 058
     Dates: start: 20131028, end: 20131102
  46. RINGERS LACTATE [Concomitant]
     Route: 042
     Dates: start: 20131015, end: 20131015
  47. ZOFRAN [Concomitant]
     Active Substance: ONDANSETRON HYDROCHLORIDE
     Indication: NAUSEA
     Route: 048
     Dates: start: 20130817, end: 20130911
  48. FENTANYL. [Concomitant]
     Active Substance: FENTANYL
     Route: 042
     Dates: start: 20131108, end: 20131108
  49. NORMAL SALINE [Concomitant]
     Active Substance: SODIUM CHLORIDE
     Route: 042
     Dates: start: 20131028, end: 20131102
  50. CHLORHEXIDINE GLUCONATE. [Concomitant]
     Active Substance: CHLORHEXIDINE GLUCONATE
     Route: 048
     Dates: start: 20131029, end: 20131102
  51. PROTONIX (UNITED STATES) [Concomitant]
     Indication: PROPHYLAXIS
     Route: 048
     Dates: start: 20131029
  52. LACTULOSE. [Concomitant]
     Active Substance: LACTULOSE
     Indication: CONSTIPATION
     Route: 048
     Dates: start: 20131107, end: 20131113
  53. HUMULIN NOS [Concomitant]
     Active Substance: INSULIN HUMAN
     Dosage: SLIDING SCALE
     Route: 058
     Dates: start: 20131011, end: 20131022
  54. MORPHINE SR [Concomitant]
     Active Substance: MORPHINE
     Indication: CHEST PAIN
     Route: 048
     Dates: start: 20131021
  55. MORPHINE SR [Concomitant]
     Active Substance: MORPHINE
     Route: 042
     Dates: start: 20131020
  56. SIMETHICONE [Concomitant]
     Active Substance: DIMETHICONE\SILICON DIOXIDE\SIMETHICONE
     Route: 048
     Dates: start: 20131014, end: 20131021
  57. CARBOPLATIN. [Suspect]
     Active Substance: CARBOPLATIN
     Indication: NON-SMALL CELL LUNG CANCER
     Dosage: DATE OF LAST DOSE PRIOR (663MG) TO SYMPYOMATIC PNEUMOTHORAX, PLEURAL EMPYEMA, INCREASED RIGHT LUNG E
     Route: 042
     Dates: start: 20130912
  58. DULCOLAX TABLET [Concomitant]
     Indication: CONSTIPATION
     Route: 048
     Dates: start: 20130821
  59. ZOFRAN [Concomitant]
     Active Substance: ONDANSETRON HYDROCHLORIDE
     Route: 042
     Dates: start: 20131107, end: 20131113
  60. FENTANYL. [Concomitant]
     Active Substance: FENTANYL
     Indication: PAIN
     Route: 062
     Dates: start: 20130726
  61. ASPIRIN. [Concomitant]
     Active Substance: ASPIRIN
     Indication: PROPHYLAXIS
     Route: 048
     Dates: start: 2012
  62. DILAUDID [Concomitant]
     Active Substance: HYDROMORPHONE HYDROCHLORIDE
     Indication: PAIN
     Route: 048
     Dates: start: 20130731
  63. DILAUDID [Concomitant]
     Active Substance: HYDROMORPHONE HYDROCHLORIDE
     Route: 048
     Dates: start: 20130731
  64. AZTREONAM. [Concomitant]
     Active Substance: AZTREONAM
     Indication: EMPYEMA
     Route: 042
     Dates: start: 20131028, end: 20131031

REACTIONS (3)
  - Empyema [Recovered/Resolved]
  - Infectious pleural effusion [Recovering/Resolving]
  - Pneumothorax [Recovered/Resolved]

NARRATIVE: CASE EVENT DATE: 20131008
